FAERS Safety Report 19459182 (Version 1)
Quarter: 2021Q2

REPORT INFORMATION
  Report Type: Spontaneous
  Country: US (occurrence: US)
  Receive Date: 20210624
  Receipt Date: 20210624
  Transmission Date: 20210717
  Serious: No
  Sender: FDA-Public Use
  Company Number: US-MYLANLABS-2021M1032532

PATIENT
  Sex: Female

DRUGS (1)
  1. CLOBETASOL MYLAN [Suspect]
     Active Substance: CLOBETASOL PROPIONATE
     Indication: SKIN INFECTION
     Dosage: UNK
     Route: 061

REACTIONS (3)
  - Product leakage [Unknown]
  - Product packaging issue [Unknown]
  - Off label use [Not Recovered/Not Resolved]
